FAERS Safety Report 22195113 (Version 1)
Quarter: 2023Q2

REPORT INFORMATION
  Report Type: Report from Study
  Country: US (occurrence: US)
  Receive Date: 20230411
  Receipt Date: 20230411
  Transmission Date: 20230721
  Serious: No
  Sender: FDA-Public Use
  Company Number: US-BIOVITRUM-2023-US-007001

PATIENT
  Age: 42 Year
  Sex: Female

DRUGS (1)
  1. KINERET [Suspect]
     Active Substance: ANAKINRA
     Indication: Pyrexia
     Dosage: FREQUENCY : DAILY ONCE
     Route: 058
     Dates: start: 20230217

REACTIONS (5)
  - Injection site pain [Unknown]
  - Intentional product misuse [Unknown]
  - Injection site pruritus [Recovering/Resolving]
  - Injection site haemorrhage [Unknown]
  - Injection site swelling [Unknown]

NARRATIVE: CASE EVENT DATE: 20230217
